FAERS Safety Report 14681077 (Version 1)
Quarter: 2018Q1

REPORT INFORMATION
  Report Type: Spontaneous
  Country: US (occurrence: US)
  Receive Date: 20180325
  Receipt Date: 20180325
  Transmission Date: 20180509
  Serious: No
  Sender: FDA-Public Use
  Company Number: None

PATIENT
  Sex: Female

DRUGS (1)
  1. HUMIRA [Suspect]
     Active Substance: ADALIMUMAB
     Indication: CROHN^S DISEASE
     Dosage: FREQUENCY - 4 PENS(160MG) ON DAY 1 THEN 2 PENS (80MG) 2
     Route: 058
     Dates: start: 20180216

REACTIONS (2)
  - Urinary tract infection [None]
  - Escherichia infection [None]
